FAERS Safety Report 7933273-9 (Version None)
Quarter: 2011Q4

REPORT INFORMATION
  Report Type: 
  Country: None (occurrence: None)
  Receive Date: 20111122
  Receipt Date: 20111115
  Transmission Date: 20120403
  Serious: Yes (Other)
  Sender: FDA-Public Use
  Company Number: US-SANOFI-AVENTIS-2011SA068264

PATIENT
  Age: 71 Year
  Sex: Male
  Weight: 122.47 kg

DRUGS (7)
  1. NOVOLOG [Concomitant]
  2. LANTUS [Suspect]
     Dosage: EVERY DAY AT NIGHT 35-40 UNITS
     Route: 058
  3. PLAVIX [Concomitant]
  4. GLIMEPIRIDE [Concomitant]
  5. ALL OTHER THERAPEUTIC PRODUCTS [Concomitant]
  6. LISINOPRIL [Concomitant]
  7. PLAVIX [Concomitant]

REACTIONS (2)
  - CORONARY ARTERY DISEASE [None]
  - CHEST PAIN [None]
